FAERS Safety Report 6014608-3 (Version None)
Quarter: 2008Q4

REPORT INFORMATION
  Report Type: 
  Country: None (occurrence: None)
  Receive Date: 20081219
  Receipt Date: 20080915
  Transmission Date: 20090506
  Serious: No
  Sender: FDA-Public Use
  Company Number: A0747484A

PATIENT
  Age: 78 Year
  Sex: Male

DRUGS (8)
  1. AVODART [Suspect]
     Route: 048
     Dates: start: 20080612, end: 20080911
  2. UNKNOWN MEDICATION [Concomitant]
  3. HYDROCHLOROTHIAZIDE [Concomitant]
  4. SYNTHROID [Concomitant]
  5. M.V.I. [Concomitant]
  6. ASPIRIN [Concomitant]
  7. PRAVASTATIN [Concomitant]
  8. TYLENOL (CAPLET) [Concomitant]

REACTIONS (1)
  - DRUG INEFFECTIVE [None]
